FAERS Safety Report 9274989 (Version 1)
Quarter: 2013Q2

REPORT INFORMATION
  Report Type: Spontaneous
  Country: US (occurrence: US)
  Receive Date: 20130507
  Receipt Date: 20130507
  Transmission Date: 20140414
  Serious: Yes (Other)
  Sender: FDA-Public Use
  Company Number: US-ELI_LILLY_AND_COMPANY-US201304008406

PATIENT
  Age: 78 Year
  Sex: Male

DRUGS (4)
  1. HUMALOG LISPRO [Suspect]
     Indication: DIABETES MELLITUS
     Dosage: 10 U, BID
  2. LANTUS [Concomitant]
  3. GLUCOPHAGE [Concomitant]
  4. WARFARIN [Concomitant]

REACTIONS (7)
  - Blindness [Unknown]
  - Eye haemorrhage [Unknown]
  - Cataract [Unknown]
  - Lacrimation increased [Not Recovered/Not Resolved]
  - Feeling abnormal [Unknown]
  - Blood glucose increased [Unknown]
  - Drug ineffective [Unknown]
